FAERS Safety Report 9257244 (Version 10)
Quarter: 2014Q1

REPORT INFORMATION
  Report Type: Report from Study
  Country: JP (occurrence: JP)
  Receive Date: 20130426
  Receipt Date: 20140207
  Transmission Date: 20141002
  Serious: Yes (Life-Threatening, Hospitalization, Other)
  Sender: FDA-Public Use
  Company Number: PHHY2013JP040781

PATIENT
  Age: 6 Year
  Sex: Male
  Weight: 19 kg

DRUGS (20)
  1. ACZ885 [Suspect]
     Indication: CHRONIC INFANTILE NEUROLOGICAL CUTANEOUS AND ARTICULAR SYNDROME
     Dosage: 37.5 MG, UNK
     Route: 058
     Dates: start: 20130125, end: 20130125
  2. ACZ885 [Suspect]
     Dosage: 75 MG, UNK
     Route: 058
     Dates: start: 20130215, end: 20130215
  3. ACZ885 [Suspect]
     Dosage: 112.5 MG, UNK
     Route: 058
     Dates: start: 20130310, end: 20130310
  4. ACZ885 [Suspect]
     Dosage: 112.5 MG, UNK
     Route: 058
     Dates: start: 20130402, end: 20130402
  5. ACZ885 [Suspect]
     Dosage: 144 MG, UNK
     Route: 058
     Dates: start: 20130501, end: 20130501
  6. ACZ885 [Suspect]
     Dosage: 144 MG, UNK
     Route: 058
     Dates: start: 20130601, end: 20130601
  7. ACZ885 [Suspect]
     Dosage: 144 MG
     Route: 058
     Dates: start: 20130629, end: 20130629
  8. ACZ885 [Suspect]
     Dosage: 144 MG, UNK
     Route: 058
     Dates: start: 20130720, end: 20130720
  9. ACZ885 [Suspect]
     Dosage: 144 MG, UNK
     Route: 058
     Dates: start: 20130813, end: 20130813
  10. ACZ885 [Suspect]
     Dosage: 144 MG, UNK
     Route: 058
     Dates: start: 20130910, end: 20130910
  11. ACZ885 [Suspect]
     Dosage: 144 MG, UNK
     Route: 058
     Dates: start: 20131016, end: 20131016
  12. ACZ885 [Suspect]
     Dosage: 144 MG, UNK
     Route: 058
     Dates: start: 20131113, end: 20131113
  13. ACZ885 [Suspect]
     Dosage: 195 MG, UNK
     Route: 058
     Dates: start: 20140102, end: 20140102
  14. ACZ885 [Suspect]
     Dosage: 195 UNK, UNK
     Route: 058
     Dates: start: 20131211
  15. NEORAL [Concomitant]
     Indication: CHRONIC INFANTILE NEUROLOGICAL CUTANEOUS AND ARTICULAR SYNDROME
     Dosage: 50 MG
     Route: 048
     Dates: start: 201303
  16. NEORAL [Concomitant]
     Indication: OFF LABEL USE
  17. ACTEMRA [Concomitant]
     Indication: CHRONIC INFANTILE NEUROLOGICAL CUTANEOUS AND ARTICULAR SYNDROME
     Route: 042
     Dates: start: 20120803, end: 20130111
  18. METHOTREXATE [Concomitant]
     Indication: CHRONIC INFANTILE NEUROLOGICAL CUTANEOUS AND ARTICULAR SYNDROME
     Route: 048
     Dates: start: 20120409, end: 20130125
  19. PREDONINE//PREDNISOLONE [Concomitant]
     Indication: CHRONIC INFANTILE NEUROLOGICAL CUTANEOUS AND ARTICULAR SYNDROME
     Dosage: 10 MG
     Route: 048
     Dates: start: 201303
  20. PREDONINE//PREDNISOLONE [Concomitant]
     Indication: HISTIOCYTOSIS HAEMATOPHAGIC

REACTIONS (19)
  - Histiocytosis haematophagic [Recovered/Resolved]
  - Hepatomegaly [Recovering/Resolving]
  - Splenomegaly [Recovering/Resolving]
  - Haemorrhagic disorder [Recovering/Resolving]
  - Serum ferritin increased [Recovering/Resolving]
  - Blood lactate dehydrogenase increased [Recovering/Resolving]
  - Pancytopenia [Unknown]
  - Sepsis [Unknown]
  - Bronchopulmonary aspergillosis [Recovering/Resolving]
  - Computerised tomogram thorax abnormal [Unknown]
  - Pyrexia [Unknown]
  - Cough [Unknown]
  - Pleural effusion [Recovering/Resolving]
  - Pneumonia [Recovering/Resolving]
  - Cardiac hypertrophy [Unknown]
  - Multi-organ failure [Unknown]
  - Renal impairment [Unknown]
  - Hypertension [Recovering/Resolving]
  - Hyperlipidaemia [Recovering/Resolving]
